FAERS Safety Report 5367895-9 (Version None)
Quarter: 2007Q2

REPORT INFORMATION
  Report Type: 
  Country: None (occurrence: None)
  Receive Date: 20070622
  Receipt Date: 20070612
  Transmission Date: 20071010
  Serious: Yes (Hospitalization)
  Sender: FDA-Public Use
  Company Number: DE-ROXANE LABORATORIES, INC-2007-DE-02737DE

PATIENT
  Sex: Female
  Weight: 50 kg

DRUGS (5)
  1. BUSCOPAN PLUS [Suspect]
     Route: 048
  2. IBUPROFEN (NON-BI DRUG) [Suspect]
     Route: 048
  3. COCAINE [Suspect]
     Route: 048
  4. PARACETAMOL (NON-BI DRUG) [Suspect]
     Route: 048
  5. CANNABIS [Suspect]
     Route: 048

REACTIONS (5)
  - DRUG ABUSER [None]
  - NAUSEA [None]
  - OVERDOSE [None]
  - SUICIDE ATTEMPT [None]
  - VOMITING [None]
